FAERS Safety Report 4471484-8 (Version None)
Quarter: 2004Q4

REPORT INFORMATION
  Report Type: 
  Country: None (occurrence: None)
  Receive Date: 20041012
  Receipt Date: 20040706
  Transmission Date: 20050328
  Serious: Yes (Other)
  Sender: FDA-Public Use
  Company Number: US-AMGEN-US082541

PATIENT
  Sex: Female

DRUGS (8)
  1. ENBREL [Suspect]
     Indication: RHEUMATOID ARTHRITIS
     Route: 058
     Dates: start: 20030101
  2. IBUPROFEN [Suspect]
     Route: 048
     Dates: start: 20040801
  3. DYAZIDE [Concomitant]
  4. VITAMIN CAP [Concomitant]
  5. ACCUPRIL [Concomitant]
  6. COLCHICINE [Concomitant]
     Dates: start: 20030901
  7. PREVACID [Concomitant]
     Dates: start: 20040601
  8. FOLIC ACID [Concomitant]
     Dates: start: 19981101

REACTIONS (3)
  - FELTY'S SYNDROME [None]
  - IRON DEFICIENCY ANAEMIA [None]
  - VASCULITIS [None]
